FAERS Safety Report 4687327-3 (Version None)
Quarter: 2005Q2

REPORT INFORMATION
  Report Type: 
  Country: None (occurrence: None)
  Receive Date: 20050609
  Receipt Date: 20050608
  Transmission Date: 20051028
  Serious: Yes (Hospitalization)
  Sender: FDA-Public Use
  Company Number: 2005S1004152

PATIENT
  Age: 46 Year
  Sex: Female
  Weight: 56.6996 kg

DRUGS (6)
  1. LORAZEPAM TABLETS, USP (2 MG) [Suspect]
     Indication: DELIRIUM TREMENS
     Dosage: 2 MG PRN PO
     Route: 048
     Dates: start: 20050504, end: 20050506
  2. LORAZEPAM TABLETS, USP (2 MG) [Suspect]
     Indication: PROPHYLAXIS
     Dosage: 2 MG PRN PO
     Route: 048
     Dates: start: 20050504, end: 20050506
  3. ESCITALOPRAM OXALATE [Concomitant]
  4. RISPERIDONE [Concomitant]
  5. DESLORATADINE [Concomitant]
  6. BUSPIRONE HCL [Concomitant]

REACTIONS (3)
  - DELIRIUM TREMENS [None]
  - DRUG SCREEN NEGATIVE [None]
  - LABORATORY TEST INTERFERENCE [None]
